FAERS Safety Report 5958687-8 (Version None)
Quarter: 2008Q4

REPORT INFORMATION
  Report Type: 
  Country: None (occurrence: None)
  Receive Date: 20081110
  Receipt Date: 20081001
  Transmission Date: 20090506
  Serious: No
  Sender: FDA-Public Use
  Company Number: 2008US002656

PATIENT
  Age: 75 Year
  Sex: Female
  Weight: 39.5 kg

DRUGS (12)
  1. LEXISCAN [Suspect]
     Indication: CORONARY ARTERY DISEASE
     Dosage: IV NOS
     Route: 042
     Dates: start: 20080822, end: 20080822
  2. BONIVA [Concomitant]
  3. CELEBREX [Concomitant]
  4. CLONAZEPAM [Concomitant]
  5. DURAGESIC-100 [Concomitant]
  6. LEVOTHYROXINE SODIUM [Concomitant]
  7. LORTAB [Concomitant]
  8. NEXIUM (ESOMEPRAZOLE SODIUM) [Concomitant]
  9. SERTRALINE [Concomitant]
  10. SIMVASTATIN [Concomitant]
  11. SOMA [Concomitant]
  12. WELCHOL [Concomitant]

REACTIONS (2)
  - BONE PAIN [None]
  - MYALGIA [None]
